FAERS Safety Report 6461722-4 (Version None)
Quarter: 2009Q4

REPORT INFORMATION
  Report Type: 
  Country: None (occurrence: None)
  Receive Date: 20091130
  Receipt Date: 20091118
  Transmission Date: 20100525
  Serious: Yes (Hospitalization, Other)
  Sender: FDA-Public Use
  Company Number: US-BRISTOL-MYERS SQUIBB COMPANY-14850242

PATIENT
  Age: 44 Year
  Sex: Male

DRUGS (7)
  1. ATAZANAVIR [Suspect]
     Indication: HIV INFECTION
     Dates: start: 20040101
  2. DIDANOSINE [Suspect]
     Indication: HIV INFECTION
     Dates: start: 20040101
  3. TRIAMCINOLONE ACETONIDE [Interacting]
     Indication: ARTHRALGIA
     Dosage: TRIAMCINOLONE INJECTION
     Route: 014
     Dates: start: 20081101
  4. RITONAVIR [Interacting]
     Indication: HIV INFECTION
     Dates: start: 20040101
  5. INSULIN DETEMIR [Suspect]
     Dosage: INSULIN DETEMIR HAD BEEN TITRATED UP TO 41 UNITS DAILY
     Route: 058
  6. INSULIN ASPART [Suspect]
     Route: 058
  7. TENOFOVIR DISOPROXIL FUMARATE [Suspect]
     Indication: HIV INFECTION
     Dates: start: 20040101

REACTIONS (3)
  - ADRENAL SUPPRESSION [None]
  - DRUG INTERACTION [None]
  - HYPERGLYCAEMIA [None]
